FAERS Safety Report 5590563-5 (Version None)
Quarter: 2008Q1

REPORT INFORMATION
  Report Type: 
  Country: None (occurrence: None)
  Receive Date: 20080110
  Receipt Date: 20080103
  Transmission Date: 20080703
  Serious: Yes (Other)
  Sender: FDA-Public Use
  Company Number: GXKR2008US00500

PATIENT
  Age: 78 Year
  Sex: Female

DRUGS (3)
  1. MORPHINE [Suspect]
     Indication: POSTOPERATIVE ANALGESIA
     Dosage: 1 MG, PRN PER 30 MIN VIA PCA, INTRAVENOUS
     Route: 042
  2. LORAZEPAM [Suspect]
     Indication: NERVOUSNESS
     Dosage: 0.5 MG, INTRAVENOUS
     Route: 042
  3. OPIUM AND BELLADONNA(ATROPABELLADONNA DRY EXTRACT, BELLADONNA DRY EXTR [Suspect]
     Indication: BLADDER SPASM
     Dosage: RECTAL
     Route: 054

REACTIONS (12)
  - AGGRESSION [None]
  - AGITATION [None]
  - ANXIETY [None]
  - DECREASED ACTIVITY [None]
  - DELIRIUM [None]
  - DISTURBANCE IN ATTENTION [None]
  - INCOHERENT [None]
  - LETHARGY [None]
  - PSYCHOMOTOR HYPERACTIVITY [None]
  - SCREAMING [None]
  - SOMNOLENCE [None]
  - SPEECH DISORDER [None]
